FAERS Safety Report 6186200-1 (Version None)
Quarter: 2009Q2

REPORT INFORMATION
  Report Type: 
  Country: None (occurrence: None)
  Receive Date: 20090511
  Receipt Date: 20090429
  Transmission Date: 20091009
  Serious: Yes (Death, Hospitalization, Other)
  Sender: FDA-Public Use
  Company Number: DE-PFIZER INC-2008095334

PATIENT
  Age: 60 Year

DRUGS (1)
  1. CHAMPIX [Suspect]
     Indication: WITHDRAWAL SYNDROME
     Dosage: UNK
     Route: 048
     Dates: start: 20090401, end: 20090401

REACTIONS (5)
  - ANXIETY DISORDER [None]
  - CARDIAC DISORDER [None]
  - CARDIAC FAILURE [None]
  - COUGH [None]
  - ILL-DEFINED DISORDER [None]
